FAERS Safety Report 10917623 (Version 1)
Quarter: 2015Q1

REPORT INFORMATION
  Report Type: Spontaneous
  Country: US (occurrence: US)
  Receive Date: 20150316
  Receipt Date: 20150316
  Transmission Date: 20150721
  Serious: Yes (Other)
  Sender: FDA-Public Use
  Company Number: US-SA-2015SA028582

PATIENT
  Age: 70 Year
  Sex: Female

DRUGS (4)
  1. NASACORT ALLERGY 24HR [Suspect]
     Active Substance: TRIAMCINOLONE ACETONIDE
     Indication: NASAL CONGESTION
     Dosage: TAKEN FROM:ABOUT 6 WEEKS AGO?TAKEN TO:ABOUT 4 DAYS AGO?DOSE:110MCG EACH NARES
     Route: 045
  2. PREDNISONE. [Concomitant]
     Active Substance: PREDNISONE
     Route: 048
  3. BIAXIN [Concomitant]
     Active Substance: CLARITHROMYCIN
  4. ASMANEX [Concomitant]
     Active Substance: MOMETASONE FUROATE

REACTIONS (2)
  - Pulmonary congestion [Not Recovered/Not Resolved]
  - Nasal dryness [Not Recovered/Not Resolved]
